FAERS Safety Report 6731569-X (Version None)
Quarter: 2010Q2

REPORT INFORMATION
  Report Type: 
  Country: None (occurrence: None)
  Receive Date: 20100519
  Receipt Date: 20100510
  Transmission Date: 20101027
  Serious: No
  Sender: FDA-Public Use
  Company Number: 2009BI013841

PATIENT
  Age: 56 Year
  Sex: Female

DRUGS (1)
  1. TYSABRI [Suspect]
     Indication: MULTIPLE SCLEROSIS
     Route: 042
     Dates: start: 20080624

REACTIONS (15)
  - ADVERSE DRUG REACTION [None]
  - BONE DENSITY DECREASED [None]
  - BURSITIS [None]
  - CATARACT [None]
  - CYSTITIS [None]
  - DRUG HYPERSENSITIVITY [None]
  - FATIGUE [None]
  - HYPOAESTHESIA [None]
  - MULTIPLE SCLEROSIS RELAPSE [None]
  - MUSCULOSKELETAL PAIN [None]
  - OEDEMA PERIPHERAL [None]
  - PAIN IN EXTREMITY [None]
  - PLANTAR FASCIITIS [None]
  - POOR VENOUS ACCESS [None]
  - PRURITUS [None]
